FAERS Safety Report 6850514-X (Version None)
Quarter: 2010Q3

REPORT INFORMATION
  Report Type: 
  Country: None (occurrence: None)
  Receive Date: 20100716
  Receipt Date: 20071206
  Transmission Date: 20110219
  Serious: No
  Sender: FDA-Public Use
  Company Number: US-PFIZER INC-2007088673

PATIENT
  Age: 75 Year
  Sex: Female

DRUGS (4)
  1. CHANTIX [Suspect]
     Indication: SMOKING CESSATION THERAPY
     Dates: start: 20070901
  2. VERAPAMIL [Concomitant]
     Route: 048
     Dates: start: 19720101
  3. HYDROCHLOROTHIAZIDE [Concomitant]
     Route: 048
     Dates: start: 19720101
  4. POTASSIUM CHLORIDE [Concomitant]
     Route: 048
     Dates: start: 19720101

REACTIONS (3)
  - HEADACHE [None]
  - NAUSEA [None]
  - NIGHTMARE [None]
